FAERS Safety Report 7397057-5 (Version None)
Quarter: 2011Q2

REPORT INFORMATION
  Report Type: 
  Country: None (occurrence: None)
  Receive Date: 20110406
  Receipt Date: 20110401
  Transmission Date: 20111010
  Serious: Yes (Hospitalization, Congenital Anomaly)
  Sender: FDA-Public Use
  Company Number: A0687280A

PATIENT
  Sex: Female
  Weight: 3.4 kg

DRUGS (5)
  1. PAXIL [Suspect]
     Indication: ANXIETY
     Dosage: 10MG PER DAY
     Route: 064
     Dates: start: 20050301, end: 20050601
  2. PAROXETINE HYDROCHLORIDE [Suspect]
     Route: 065
  3. PRENATAL VITAMINS [Concomitant]
     Route: 064
  4. ACETAMINOPHEN [Concomitant]
     Route: 064
  5. ADIPEX [Concomitant]
     Dosage: 37.5MG PER DAY
     Route: 064
     Dates: start: 20050101, end: 20050601

REACTIONS (4)
  - DRUG EXPOSURE DURING PREGNANCY [None]
  - ATRIAL SEPTAL DEFECT [None]
  - MATERNAL DRUGS AFFECTING FOETUS [None]
  - VENTRICULAR SEPTAL DEFECT [None]
